FAERS Safety Report 12908779 (Version 2)
Quarter: 2017Q2

REPORT INFORMATION
  Report Type: Spontaneous
  Country: CA (occurrence: CA)
  Receive Date: 20161103
  Receipt Date: 20170505
  Transmission Date: 20170830
  Serious: Yes (Hospitalization)
  Sender: FDA-Public Use
  Company Number: CA-BAXALTA-2016BLT007821

PATIENT
  Age: 12 Year
  Sex: Female
  Weight: 64 kg

DRUGS (15)
  1. HYDROXYCHLOROQUINE [Suspect]
     Active Substance: HYDROXYCHLOROQUINE
     Indication: RHEUMATOID ARTHRITIS
     Route: 048
  2. METHOTREXATE. [Suspect]
     Active Substance: METHOTREXATE
     Indication: RHEUMATOID ARTHRITIS
     Dosage: 15 MG/M2, 1X A WEEK
     Route: 065
  3. TOCILIZUMAB [Suspect]
     Active Substance: TOCILIZUMAB
     Indication: RHEUMATOID ARTHRITIS
     Dosage: 280 MG, 2X A WEEK
     Route: 042
  4. ADALIMUMAB [Suspect]
     Active Substance: ADALIMUMAB
     Indication: RHEUMATOID ARTHRITIS
     Route: 065
  5. ANAKINRA [Suspect]
     Active Substance: ANAKINRA
     Indication: RHEUMATOID ARTHRITIS
     Route: 058
  6. NAPROXEN. [Suspect]
     Active Substance: NAPROXEN
     Indication: RHEUMATOID ARTHRITIS
     Route: 065
  7. TRIAMCINOLONE [Suspect]
     Active Substance: TRIAMCINOLONE
     Indication: RHEUMATOID ARTHRITIS
     Dosage: SPRAY METERED DOSE
     Route: 065
  8. GAMMAGARD LIQUID [Suspect]
     Active Substance: HUMAN IMMUNOGLOBULIN G
     Indication: OFF LABEL USE
  9. INFLIXIMAB [Suspect]
     Active Substance: INFLIXIMAB
     Indication: RHEUMATOID ARTHRITIS
     Dosage: 3.0 MG/KG, EVERY 6 WK
     Route: 042
  10. ETANERCEPT [Suspect]
     Active Substance: ETANERCEPT
     Dosage: 12.5 MG, 1X A WEEK
     Route: 058
  11. ABATACEPT [Suspect]
     Active Substance: ABATACEPT
     Indication: RHEUMATOID ARTHRITIS
     Dosage: 200 MG, 1X A MONTH
     Route: 042
  12. ETANERCEPT [Suspect]
     Active Substance: ETANERCEPT
     Indication: RHEUMATOID ARTHRITIS
     Dosage: 25 MG, 2X A WEEK
     Route: 058
  13. PREDNISONE. [Suspect]
     Active Substance: PREDNISONE
     Indication: RHEUMATOID ARTHRITIS
     Dosage: 50 MG, TABLET
     Route: 048
  14. GAMMAGARD LIQUID [Suspect]
     Active Substance: HUMAN IMMUNOGLOBULIN G
     Indication: RHEUMATOID ARTHRITIS
     Route: 042
  15. SULFASALAZINE. [Suspect]
     Active Substance: SULFASALAZINE
     Indication: RHEUMATOID ARTHRITIS
     Dosage: 250 MG, 1X A DAY
     Route: 048

REACTIONS (15)
  - Adrenal insufficiency [Unknown]
  - Drug ineffective [Unknown]
  - Joint destruction [Unknown]
  - Obesity [Unknown]
  - Vomiting [Unknown]
  - Body height below normal [Unknown]
  - Diarrhoea [Unknown]
  - Bone density decreased [Unknown]
  - Drug effect decreased [Unknown]
  - Human antichimeric antibody positive [Unknown]
  - Synovitis [Unknown]
  - Septic shock [Unknown]
  - Dizziness [Unknown]
  - Rheumatoid arthritis [Unknown]
  - Nausea [Unknown]
